FAERS Safety Report 7351783-2 (Version None)
Quarter: 2011Q1

REPORT INFORMATION
  Report Type: 
  Country: None (occurrence: None)
  Receive Date: 20110315
  Receipt Date: 20100908
  Transmission Date: 20110831
  Serious: Yes (Other)
  Sender: FDA-Public Use
  Company Number: US-BAYER-201023689NA

PATIENT
  Sex: Female
  Weight: 99.773 kg

DRUGS (5)
  1. METFORMIN [Concomitant]
     Dosage: UNK UNK, BID
     Route: 048
  2. KEFLEX [Concomitant]
     Dosage: 500 MG, UNK
     Route: 048
  3. GLUCOPHAGE [Concomitant]
     Indication: POLYCYSTIC OVARIES
     Dosage: UNK
     Dates: start: 20010101
  4. YASMIN [Suspect]
     Indication: MENSTRUAL DISORDER
  5. YASMIN [Suspect]
     Indication: POLYCYSTIC OVARIES
     Dosage: UNK UNK, UNK
     Route: 048
     Dates: start: 20030101, end: 20080905

REACTIONS (1)
  - DEEP VEIN THROMBOSIS [None]
